FAERS Safety Report 10069167 (Version 1)
Quarter: 2014Q2

REPORT INFORMATION
  Report Type: Spontaneous
  Country: US (occurrence: US)
  Receive Date: 20140409
  Receipt Date: 20140409
  Transmission Date: 20141212
  Serious: No
  Sender: FDA-Public Use
  Company Number: US-009507513-1404USA005542

PATIENT
  Sex: Female
  Weight: 104.7 kg

DRUGS (1)
  1. PROVENTIL [Suspect]
     Dosage: UNK

REACTIONS (2)
  - Syncope [Unknown]
  - Tachycardia [Unknown]
